FAERS Safety Report 13710964 (Version 1)
Quarter: 2017Q3

REPORT INFORMATION
  Report Type: Report from Study
  Country: RU (occurrence: RU)
  Receive Date: 20170703
  Receipt Date: 20170703
  Transmission Date: 20171127
  Serious: Yes (Other)
  Sender: FDA-Public Use
  Company Number: RU-TEVA-782422ISR

PATIENT
  Age: 3 Year
  Sex: Male
  Weight: 12 kg

DRUGS (6)
  1. DOXORUBICIN TEVA [Suspect]
     Active Substance: DOXORUBICIN
     Indication: RHABDOMYOSARCOMA
     Dosage: 17 MILLIGRAM DAILY; LAST DOSE PRIOR TO SAE: 21-APR-2017
     Route: 042
     Dates: start: 20170420
  2. IFOSFAMIDE. [Suspect]
     Active Substance: IFOSFAMIDE
     Indication: RHABDOMYOSARCOMA
     Dosage: 1680 MILLIGRAM DAILY; LAST DOSE PRIOR TO SAE: 21-APR-2017
     Route: 042
     Dates: start: 20170420
  3. NEUPOGEN [Suspect]
     Active Substance: FILGRASTIM
     Indication: NEUTROPENIA
     Dosage: 60 MILLIGRAM DAILY; LAST DOSE PRIOR TO SAE: 25-APR-2017
     Route: 058
     Dates: start: 20170331
  4. ACTINOMYCIN D [Suspect]
     Active Substance: DACTINOMYCIN
     Indication: RHABDOMYOSARCOMA
     Dosage: .8 MILLIGRAM DAILY; LAST DOSE PRIOR TO SAE: 20-APR-2017
     Route: 042
     Dates: start: 20170420
  5. LONQUEX [Suspect]
     Active Substance: LIPEGFILGRASTIM
     Indication: NEUTROPENIA
     Dosage: 0 MILLIGRAM DAILY;
     Route: 058
  6. VINCRISTIN [Suspect]
     Active Substance: VINCRISTINE
     Indication: RHABDOMYOSARCOMA
     Dosage: .8 MILLIGRAM DAILY; LAST DOSE PRIOR TO SAE: 20-APR-2017
     Route: 042
     Dates: start: 20170420

REACTIONS (1)
  - Lymphocyte count decreased [Recovered/Resolved with Sequelae]

NARRATIVE: CASE EVENT DATE: 20170426
